FAERS Safety Report 6400181-4 (Version None)
Quarter: 2009Q4

REPORT INFORMATION
  Report Type: 
  Country: None (occurrence: None)
  Receive Date: 20091014
  Receipt Date: 20091001
  Transmission Date: 20100525
  Serious: Yes (Hospitalization)
  Sender: FDA-Public Use
  Company Number: CH-ELI_LILLY_AND_COMPANY-CH200910000353

PATIENT
  Age: 62 Year
  Sex: Male

DRUGS (1)
  1. CIALIS [Suspect]
     Dosage: 10 MG, UNK
     Route: 048
     Dates: start: 20090602, end: 20090602

REACTIONS (3)
  - PARAESTHESIA [None]
  - SUDDEN HEARING LOSS [None]
  - TRANSIENT ISCHAEMIC ATTACK [None]
